FAERS Safety Report 20820086 (Version 1)
Quarter: 2022Q2

REPORT INFORMATION
  Report Type: Spontaneous
  Country: US (occurrence: None)
  Receive Date: 20220512
  Receipt Date: 20220512
  Transmission Date: 20220721
  Serious: No
  Sender: FDA-Public Use
  Company Number: None

PATIENT
  Age: 63 Year
  Sex: Male
  Weight: 120.20 kg

DRUGS (1)
  1. CASIRIVIMAB\IMDEVIMAB [Suspect]
     Active Substance: CASIRIVIMAB\IMDEVIMAB
     Indication: COVID-19 pneumonia
     Dates: start: 20210826, end: 20210826

REACTIONS (4)
  - Chest pain [None]
  - Back pain [None]
  - Dyspnoea [None]
  - Breath sounds abnormal [None]

NARRATIVE: CASE EVENT DATE: 20210826
